FAERS Safety Report 10583230 (Version 1)
Quarter: 2014Q4

REPORT INFORMATION
  Report Type: Spontaneous
  Country: IN (occurrence: IN)
  Receive Date: 20141114
  Receipt Date: 20141114
  Transmission Date: 20150529
  Serious: Yes (Other)
  Sender: FDA-Public Use
  Company Number: IN-SUN PHARMACEUTICAL INDUSTRIES LTD-2014SUN02523

PATIENT

DRUGS (2)
  1. DICORATE ER [Suspect]
     Active Substance: DIVALPROEX SODIUM
     Indication: SEIZURE
     Dosage: UNK
     Route: 065
     Dates: start: 201401
  2. ADMENTA(UNKNOWN) [Suspect]
     Active Substance: MEMANTINE HYDROCHLORIDE
     Indication: SEIZURE
     Dosage: UNK
     Route: 065

REACTIONS (3)
  - Decreased appetite [Recovered/Resolved]
  - Liver injury [Recovered/Resolved]
  - Hepatitis [Recovered/Resolved]
